FAERS Safety Report 7737395-7 (Version None)
Quarter: 2011Q3

REPORT INFORMATION
  Report Type: 
  Country: None (occurrence: None)
  Receive Date: 20110908
  Receipt Date: 20110504
  Transmission Date: 20111222
  Serious: No
  Sender: FDA-Public Use
  Company Number: US-BAYER-2011-039257

PATIENT
  Age: 38 Year
  Sex: Female

DRUGS (3)
  1. MIRENA [Suspect]
     Indication: CONTRACEPTION
     Dosage: 20 MCG/24HR, CONT
     Route: 015
     Dates: start: 20110427
  2. MIRENA [Suspect]
     Indication: MENORRHAGIA
  3. EXFORGE [Concomitant]
     Indication: HYPERTENSION

REACTIONS (4)
  - POST PROCEDURAL HAEMORRHAGE [None]
  - ABDOMINAL PAIN [None]
  - ASTHENIA [None]
  - SLUGGISHNESS [None]
